FAERS Safety Report 12801973 (Version 1)
Quarter: 2016Q4

REPORT INFORMATION
  Report Type: Spontaneous
  Country: US (occurrence: US)
  Receive Date: 20161003
  Receipt Date: 20161003
  Transmission Date: 20170207
  Serious: No
  Sender: FDA-Public Use
  Company Number: US-JAZZ-2016-US-010914

PATIENT
  Sex: Female

DRUGS (34)
  1. LYRICA [Suspect]
     Active Substance: PREGABALIN
     Dosage: UNK
     Dates: end: 201606
  2. DOXEPIN [Concomitant]
     Active Substance: DOXEPIN
  3. TERCONAZOLE. [Concomitant]
     Active Substance: TERCONAZOLE
  4. CLONAZEPAM. [Concomitant]
     Active Substance: CLONAZEPAM
  5. L LYSINE [Concomitant]
  6. OLIVE LEAF EXTRACT [Concomitant]
  7. PRAMIPEXOLE. [Concomitant]
     Active Substance: PRAMIPEXOLE
  8. VIVELLE-DOT [Concomitant]
     Active Substance: ESTRADIOL
  9. XYREM [Suspect]
     Active Substance: SODIUM OXYBATE
     Indication: NARCOLEPSY
     Dosage: 3.25 G, BID
     Route: 048
     Dates: start: 201403, end: 201406
  10. PHOS-NAK [Concomitant]
     Active Substance: POTASSIUM PHOSPHATE, MONOBASIC\SODIUM PHOSPHATE, DIBASIC, ANHYDROUS\SODIUM PHOSPHATE, MONOBASIC, MONOHYDRATE
  11. SUPER BIOTIN [Concomitant]
  12. TRAZODONE [Concomitant]
     Active Substance: TRAZODONE HYDROCHLORIDE
  13. UBIQUINOL [Concomitant]
     Active Substance: UBIQUINOL
  14. XYREM [Suspect]
     Active Substance: SODIUM OXYBATE
     Dosage: 4.5 G, BID
     Route: 048
     Dates: start: 201510
  15. SONATA [Suspect]
     Active Substance: ZALEPLON
     Indication: PRODUCT USED FOR UNKNOWN INDICATION
     Dosage: UNK
     Dates: start: 20150804, end: 20150930
  16. LYRICA [Suspect]
     Active Substance: PREGABALIN
     Indication: PRODUCT USED FOR UNKNOWN INDICATION
     Dosage: UNK
     Dates: start: 20140113
  17. POTASSIUM CL ER [Concomitant]
     Active Substance: POTASSIUM CHLORIDE
  18. ASTAXANTHIN [Concomitant]
  19. PROBIOTIC [Concomitant]
     Active Substance: PROBIOTICS NOS
  20. LEVOTHYROXINE. [Concomitant]
     Active Substance: LEVOTHYROXINE
  21. PREGNENOLONE [Concomitant]
     Active Substance: PREGNENOLONE
  22. XYREM [Suspect]
     Active Substance: SODIUM OXYBATE
     Indication: CATAPLEXY
     Dosage: DOSE ADJUSTMENTS
     Route: 048
     Dates: start: 201406, end: 201510
  23. LUNESTA [Concomitant]
     Active Substance: ESZOPICLONE
  24. METFORMIN HCL [Concomitant]
     Active Substance: METFORMIN HYDROCHLORIDE
  25. CEREFOLIN NAC [Concomitant]
  26. SONATA [Suspect]
     Active Substance: ZALEPLON
     Dosage: UNK
     Dates: start: 20150804, end: 20150831
  27. MOLDEN [Concomitant]
  28. NIACIN. [Concomitant]
     Active Substance: NIACIN
  29. VITAMIN D3 [Concomitant]
     Active Substance: CHOLECALCIFEROL
  30. LYRICA [Suspect]
     Active Substance: PREGABALIN
     Dosage: UNK
     Dates: start: 20140113, end: 201603
  31. CYCLOBENZAPRINE [Concomitant]
     Active Substance: CYCLOBENZAPRINE
  32. DHA [Concomitant]
     Active Substance: DIETARY SUPPLEMENT
  33. PROGESTERONE. [Concomitant]
     Active Substance: PROGESTERONE
  34. ROZEREM [Concomitant]
     Active Substance: RAMELTEON

REACTIONS (4)
  - Fungal infection [Unknown]
  - Therapeutic response unexpected [Unknown]
  - Drug ineffective [Unknown]
  - Pre-existing condition improved [Unknown]

NARRATIVE: CASE EVENT DATE: 2014
